FAERS Safety Report 17058067 (Version 2)
Quarter: 2019Q4

REPORT INFORMATION
  Report Type: Spontaneous
  Country: TR (occurrence: TR)
  Receive Date: 20191121
  Receipt Date: 20191217
  Transmission Date: 20200122
  Serious: Yes (Other)
  Sender: FDA-Public Use
  Company Number: TR-PFIZER INC-2019482206

PATIENT
  Age: 47 Year
  Sex: Male

DRUGS (5)
  1. CIPRO [Interacting]
     Active Substance: CIPROFLOXACIN HYDROCHLORIDE
     Indication: PNEUMONIA
  2. PANOCER [Concomitant]
     Indication: PROPHYLAXIS
     Dosage: 40 MG, 1X/DAY
     Route: 048
     Dates: start: 2019
  3. XANAX [Interacting]
     Active Substance: ALPRAZOLAM
     Indication: PANIC ATTACK
  4. XANAX [Suspect]
     Active Substance: ALPRAZOLAM
     Indication: ANXIETY DISORDER
     Dosage: 0.5 MG, 2X/DAY (A HALF OF THE 1 MG TABLET IN THE MORNING AND IN THE EVENING)
     Route: 048
     Dates: start: 2019
  5. CIPRO [Interacting]
     Active Substance: CIPROFLOXACIN HYDROCHLORIDE
     Indication: INFLUENZA
     Dosage: 500 MG, 2X/DAY
     Route: 048

REACTIONS (7)
  - Influenza [Recovered/Resolved]
  - Wrong technique in product usage process [Unknown]
  - Drug interaction [Recovered/Resolved]
  - Feeling abnormal [Unknown]
  - Product dose omission [Unknown]
  - Pneumonia [Recovered/Resolved]
  - Pruritus [Recovered/Resolved]

NARRATIVE: CASE EVENT DATE: 20191114
